FAERS Safety Report 11877786 (Version 1)
Quarter: 2015Q4

REPORT INFORMATION
  Report Type: Spontaneous
  Country: US (occurrence: US)
  Receive Date: 20151230
  Receipt Date: 20151230
  Transmission Date: 20160305
  Serious: Yes (Other)
  Sender: FDA-Public Use
  Company Number: US-BEH-2015057090

PATIENT
  Sex: Female
  Weight: 67 kg

DRUGS (19)
  1. LMX [Concomitant]
     Active Substance: LIDOCAINE
  2. DIPHENHYDRAMINE. [Concomitant]
     Active Substance: DIPHENHYDRAMINE
  3. FLUOXETINE [Concomitant]
     Active Substance: FLUOXETINE HYDROCHLORIDE
  4. GABAPENTIN. [Concomitant]
     Active Substance: GABAPENTIN
  5. ALDACTONE [Concomitant]
     Active Substance: SPIRONOLACTONE
  6. MULTIVITAMIN [Concomitant]
     Active Substance: VITAMINS
  7. OXYCONTIN [Concomitant]
     Active Substance: OXYCODONE HYDROCHLORIDE
  8. CEFTIN [Concomitant]
     Active Substance: CEFUROXIME AXETIL
  9. HIZENTRA [Suspect]
     Active Substance: HUMAN IMMUNOGLOBULIN G
     Indication: CEREBRAL ARTERY OCCLUSION
     Route: 058
     Dates: start: 20110914
  10. OXYCODONE [Concomitant]
     Active Substance: OXYCODONE
  11. LYRICA [Concomitant]
     Active Substance: PREGABALIN
  12. LOVASTATIN. [Concomitant]
     Active Substance: LOVASTATIN
  13. ZYLOPRIM [Concomitant]
     Active Substance: ALLOPURINOL
  14. EPIPEN [Concomitant]
     Active Substance: EPINEPHRINE
  15. AUGMENTIN [Concomitant]
     Active Substance: AMOXICILLIN\CLAVULANATE POTASSIUM
  16. ABILIFY [Concomitant]
     Active Substance: ARIPIPRAZOLE
  17. CLONAZEPAM. [Concomitant]
     Active Substance: CLONAZEPAM
  18. OMEPRAZOLE. [Concomitant]
     Active Substance: OMEPRAZOLE
  19. METOPROLOL [Concomitant]
     Active Substance: METOPROLOL

REACTIONS (1)
  - Lung carcinoma cell type unspecified stage III [Unknown]
